FAERS Safety Report 7186854-7 (Version None)
Quarter: 2010Q4

REPORT INFORMATION
  Report Type: 
  Country: None (occurrence: None)
  Receive Date: 20101222
  Receipt Date: 20101216
  Transmission Date: 20110411
  Serious: Yes (Hospitalization)
  Sender: FDA-Public Use
  Company Number: B0689661A

PATIENT
  Sex: Female

DRUGS (5)
  1. VALACYCLOVIR HYDROCHLORIDE (VALTREX) [Suspect]
     Indication: GENITAL HERPES
     Dosage: 500MG TWICE PER DAY
     Route: 048
     Dates: start: 20100708, end: 20100713
  2. IMUREL [Suspect]
     Indication: CROHN'S DISEASE
     Dosage: 50MG THREE TIMES PER DAY
     Route: 048
     Dates: start: 20090201
  3. MESALAZINE [Suspect]
     Indication: CROHN'S DISEASE
     Dosage: 800MG THREE TIMES PER DAY
     Route: 048
     Dates: start: 20060101
  4. MOPRAL [Suspect]
     Dosage: 20MG TWICE PER DAY
     Route: 048
     Dates: start: 20060101
  5. THERALENE [Suspect]
     Dosage: 8DROP PER DAY
     Route: 048
     Dates: start: 20100712, end: 20100719

REACTIONS (2)
  - FEBRILE NEUTROPENIA [None]
  - UPPER RESPIRATORY TRACT INFECTION [None]
